FAERS Safety Report 17010468 (Version 1)
Quarter: 2019Q4

REPORT INFORMATION
  Report Type: Report from Study
  Country: US (occurrence: US)
  Receive Date: 20191108
  Receipt Date: 20191108
  Transmission Date: 20200122
  Serious: Yes (Death)
  Sender: FDA-Public Use
  Company Number: US-ASTRAZENECA-2019SF57613

PATIENT
  Sex: Female

DRUGS (8)
  1. LEVOTHYROXINE SODIUM. [Concomitant]
     Active Substance: LEVOTHYROXINE SODIUM
  2. NEURONTIN [Concomitant]
     Active Substance: GABAPENTIN
  3. MAXZIDE [Concomitant]
     Active Substance: HYDROCHLOROTHIAZIDE\TRIAMTERENE
  4. TAGRISSO [Suspect]
     Active Substance: OSIMERTINIB
     Indication: LUNG NEOPLASM MALIGNANT
     Route: 048
     Dates: start: 20190613
  5. WARFARIN SODIUM. [Concomitant]
     Active Substance: WARFARIN SODIUM
  6. LIPITOR [Concomitant]
     Active Substance: ATORVASTATIN CALCIUM
  7. IRESSA [Suspect]
     Active Substance: GEFITINIB
     Indication: LUNG NEOPLASM MALIGNANT
     Route: 048
     Dates: start: 20170518
  8. LUNESTA [Concomitant]
     Active Substance: ESZOPICLONE

REACTIONS (1)
  - Death [Fatal]
